FAERS Safety Report 13097241 (Version 3)
Quarter: 2017Q1

REPORT INFORMATION
  Report Type: Report from Study
  Country: US (occurrence: US)
  Receive Date: 20170109
  Receipt Date: 20170303
  Transmission Date: 20170428
  Serious: Yes (Hospitalization)
  Sender: FDA-Public Use
  Company Number: US-009507513-1612USA012233

PATIENT
  Age: 47 Year
  Sex: Female

DRUGS (8)
  1. REQUIP [Concomitant]
     Active Substance: ROPINIROLE HYDROCHLORIDE
     Dosage: UNK
  2. VITAMIN D [Concomitant]
     Active Substance: CHOLECALCIFEROL
     Dosage: UNK
  3. LORAZEPAM. [Concomitant]
     Active Substance: LORAZEPAM
     Dosage: UNK
  4. LEUCOVORIN. [Concomitant]
     Active Substance: LEUCOVORIN
     Dosage: UNK
  5. CELEXA [Concomitant]
     Active Substance: CITALOPRAM HYDROBROMIDE
     Dosage: UNK
  6. FLONASE [Concomitant]
     Active Substance: FLUTICASONE PROPIONATE
     Dosage: UNK
  7. PEMBROLIZUMAB. [Suspect]
     Active Substance: PEMBROLIZUMAB
     Indication: MALIGNANT MELANOMA
     Dosage: UNK, EVERY 3 WEEKS
     Route: 042
     Dates: start: 20161213
  8. BENYLIN (DIPHENHYDRAMINE HYDROCHLORIDE) [Concomitant]
     Dosage: FORMULATION: INHALER, UNK

REACTIONS (9)
  - Musculoskeletal chest pain [Unknown]
  - Fatigue [Unknown]
  - Nasopharyngitis [Not Recovered/Not Resolved]
  - Pulmonary pain [Unknown]
  - Abdominal pain [Unknown]
  - Colitis [Recovered/Resolved]
  - Pyrexia [Not Recovered/Not Resolved]
  - Cough [Not Recovered/Not Resolved]
  - Rhinorrhoea [Not Recovered/Not Resolved]

NARRATIVE: CASE EVENT DATE: 201612
